FAERS Safety Report 8901478 (Version 1)
Quarter: 2012Q4

REPORT INFORMATION
  Report Type: Report from Study
  Country: US (occurrence: US)
  Receive Date: 20121109
  Receipt Date: 20121109
  Transmission Date: 20130627
  Serious: Yes (Hospitalization, Other)
  Sender: FDA-Public Use
  Company Number: US-ABBOTT-12P-163-0988734-00

PATIENT
  Age: 43 Year
  Sex: Male

DRUGS (3)
  1. HUMIRA PEN [Suspect]
     Indication: PSORIASIS
     Dates: start: 20120516, end: 20120724
  2. HUMIRA PEN [Suspect]
     Dates: start: 20120906
  3. ATENOLOL [Concomitant]
     Indication: ARRHYTHMIA
     Route: 048

REACTIONS (4)
  - Chest discomfort [Recovering/Resolving]
  - Pneumonia [Recovering/Resolving]
  - Arrhythmia [Recovering/Resolving]
  - Stress [Unknown]
